FAERS Safety Report 10304877 (Version 3)
Quarter: 2020Q2

REPORT INFORMATION
  Report Type: Spontaneous
  Country: IT (occurrence: IT)
  Receive Date: 20140715
  Receipt Date: 20200422
  Transmission Date: 20200713
  Serious: Yes (Other)
  Sender: FDA-Public Use
  Company Number: IT-AMGEN-ITASP2014053008

PATIENT
  Age: 20 Year
  Sex: Female

DRUGS (2)
  1. ETANERCEPT [Suspect]
     Active Substance: ETANERCEPT
     Indication: BEHCET^S SYNDROME
     Dosage: 50 MILLIGRAM, QWK
     Route: 065
  2. INFLIXIMAB [Suspect]
     Active Substance: INFLIXIMAB
     Indication: BEHCET^S SYNDROME
     Dosage: 5 MILLIGRAM/KILOGRAM, Q6WK
     Route: 065

REACTIONS (4)
  - Urinary tract infection [Unknown]
  - Product use in unapproved indication [Unknown]
  - Endocarditis bacterial [Unknown]
  - Off label use [Unknown]
